FAERS Safety Report 8539411-1 (Version None)
Quarter: 2012Q3

REPORT INFORMATION
  Report Type: 
  Country: None (occurrence: None)
  Receive Date: 20120726
  Receipt Date: 20120613
  Transmission Date: 20120928
  Serious: No
  Sender: FDA-Public Use
  Company Number: US-009507513-1207USA006430

PATIENT

DRUGS (1)
  1. CLARITIN [Suspect]
     Indication: RHINORRHOEA
     Dosage: UNK, UNKNOWN
     Route: 048
     Dates: start: 20120701

REACTIONS (1)
  - RASH ERYTHEMATOUS [None]
